FAERS Safety Report 4658268-2 (Version None)
Quarter: 2005Q2

REPORT INFORMATION
  Report Type: 
  Country: None (occurrence: None)
  Receive Date: 20050509
  Receipt Date: 20050509
  Transmission Date: 20051028
  Serious: No
  Sender: FDA-Public Use
  Company Number: None

PATIENT
  Age: 81 Year
  Sex: Female

DRUGS (9)
  1. DIGOXIN [Suspect]
     Dosage: TABLET
  2. ACENOCOUMAROL [Suspect]
     Dosage: TABLET
  3. VALPROIC ACID [Suspect]
     Dosage: SOLUTION
  4. ASCORBIC ACID [Suspect]
     Dosage: TABLET
  5. ACETAZOLAMIDE [Suspect]
     Dosage: TABLET
  6. MAGNESIUM OXIDE [Suspect]
     Dosage: TABLET
  7. OMEPRAZOLE [Suspect]
     Dosage: CAPSULE
  8. LEVOTHYROXINE SODIUM [Suspect]
     Dosage: TABLET
  9. LACTULOSE [Suspect]
     Dosage: SUSPENSION

REACTIONS (8)
  - DRUG DISPENSING ERROR [None]
  - DRUG LEVEL INCREASED [None]
  - DRUG PRESCRIBING ERROR [None]
  - DYSSTASIA [None]
  - FALL [None]
  - MEDICATION ERROR [None]
  - SEDATION [None]
  - WHEELCHAIR USER [None]
